FAERS Safety Report 17881310 (Version 1)
Quarter: 2020Q2

REPORT INFORMATION
  Report Type: Report from Study
  Country: ES (occurrence: ES)
  Receive Date: 20200610
  Receipt Date: 20200610
  Transmission Date: 20200714
  Serious: Yes (Hospitalization)
  Sender: FDA-Public Use
  Company Number: ES-PFIZER INC-2020222822

PATIENT
  Age: 69 Year
  Sex: Male

DRUGS (6)
  1. METAMIZOLE [Concomitant]
     Active Substance: METAMIZOLE
     Dosage: 3 DF, DAILY
     Route: 048
     Dates: start: 20170321, end: 20170326
  2. PARACETAMOL [Concomitant]
     Active Substance: ACETAMINOPHEN
     Dosage: 3 G, DAILY
     Route: 048
     Dates: start: 20170321
  3. METHYLPREDNISOLONE SODIUM SUCCINATE. [Suspect]
     Active Substance: METHYLPREDNISOLONE SODIUM SUCCINATE
     Dosage: 1 DF, 1X/DAY
     Route: 030
     Dates: start: 20170318, end: 20170318
  4. VOLTAREN COLIRIO UNIDOSES [Suspect]
     Active Substance: DICLOFENAC SODIUM
     Dosage: 1 DF, 1X/DAY
     Route: 030
     Dates: start: 20170318, end: 20170321
  5. PERMIXON [Concomitant]
     Active Substance: HERBALS\SAW PALMETTO
     Indication: BENIGN PROSTATIC HYPERPLASIA
     Dosage: 160 MG, DAILY
     Route: 048
     Dates: end: 20170326
  6. IMUREL [AZATHIOPRINE] [Concomitant]
     Active Substance: AZATHIOPRINE
     Indication: COLITIS ULCERATIVE
     Dosage: 50 MG, DAILY
     Route: 048

REACTIONS (1)
  - Upper gastrointestinal haemorrhage [Recovered/Resolved]

NARRATIVE: CASE EVENT DATE: 20170326
